FAERS Safety Report 23129814 (Version 4)
Quarter: 2024Q2

REPORT INFORMATION
  Report Type: Report from Study
  Country: US (occurrence: US)
  Receive Date: 20231031
  Receipt Date: 20240531
  Transmission Date: 20240716
  Serious: Yes (Hospitalization, Other)
  Sender: FDA-Public Use
  Company Number: US-ARGENX-2023-ARGX-US000460

PATIENT

DRUGS (2)
  1. VYVGART [Suspect]
     Active Substance: EFGARTIGIMOD ALFA-FCAB
     Indication: Myasthenia gravis
     Route: 042
  2. VYVGART [Suspect]
     Active Substance: EFGARTIGIMOD ALFA-FCAB
     Dosage: UNK
     Route: 042
     Dates: start: 20231205

REACTIONS (11)
  - Fall [Unknown]
  - Hypokinesia [Unknown]
  - Dehydration [Unknown]
  - Aortic valve replacement [Unknown]
  - Choking [Unknown]
  - COVID-19 [Not Recovered/Not Resolved]
  - Frontotemporal dementia [Unknown]
  - Dysphonia [Unknown]
  - Illness [Unknown]
  - Wheelchair user [Unknown]
  - Drug ineffective [Unknown]
